FAERS Safety Report 22085389 (Version 1)
Quarter: 2023Q1

REPORT INFORMATION
  Report Type: Spontaneous
  Country: US (occurrence: US)
  Receive Date: 20230310
  Receipt Date: 20230310
  Transmission Date: 20230417
  Serious: No
  Sender: FDA-Public Use
  Company Number: US-GILEAD-2023-0619759

PATIENT
  Sex: Female
  Weight: 81.6 kg

DRUGS (1)
  1. YESCARTA [Suspect]
     Active Substance: AXICABTAGENE CILOLEUCEL
     Indication: High grade B-cell lymphoma Burkitt-like lymphoma
     Dosage: UNK
     Route: 065
     Dates: start: 20220921

REACTIONS (1)
  - Pyrexia [Unknown]
